FAERS Safety Report 10036079 (Version 1)
Quarter: 2014Q1

REPORT INFORMATION
  Report Type: Spontaneous
  Country: BG (occurrence: BG)
  Receive Date: 20140325
  Receipt Date: 20140325
  Transmission Date: 20141002
  Serious: Yes (Other)
  Sender: FDA-Public Use
  Company Number: BG-PFIZER INC-2014082590

PATIENT
  Age: 57 Year
  Sex: Female

DRUGS (1)
  1. DIFLUCAN [Suspect]
     Indication: CANDIDA INFECTION
     Dosage: 10 CONSECUTIVE INFUSIONS
     Route: 042

REACTIONS (3)
  - Haemoptysis [Recovering/Resolving]
  - Infection [Unknown]
  - Glossitis [Unknown]
